FAERS Safety Report 4510141-6 (Version None)
Quarter: 2004Q4

REPORT INFORMATION
  Report Type: 
  Country: None (occurrence: None)
  Receive Date: 20041124
  Receipt Date: 20041116
  Transmission Date: 20050328
  Serious: Yes (Life-Threatening, Hospitalization, Disabling)
  Sender: FDA-Public Use
  Company Number: DK-BRISTOL-MYERS SQUIBB COMPANY-12766739

PATIENT
  Sex: Male

DRUGS (1)
  1. ABILIFY [Suspect]
     Indication: SCHIZOPHRENIA
     Dosage: INITIATED 2-3 WEEKS PRIOR TO THE EVENT.
     Route: 048

REACTIONS (3)
  - DRUG INEFFECTIVE [None]
  - PARALYSIS [None]
  - SUICIDE ATTEMPT [None]
